FAERS Safety Report 6359905-7 (Version None)
Quarter: 2009Q3

REPORT INFORMATION
  Report Type: 
  Country: None (occurrence: None)
  Receive Date: 20090917
  Receipt Date: 20080825
  Transmission Date: 20100115
  Serious: No
  Sender: FDA-Public Use
  Company Number: US-BRISTOL-MYERS SQUIBB COMPANY-14315840

PATIENT
  Sex: Female

DRUGS (1)
  1. MEGACE [Suspect]
     Indication: NEOPLASM MALIGNANT

REACTIONS (1)
  - GASTROOESOPHAGEAL REFLUX DISEASE [None]
